FAERS Safety Report 20321166 (Version 1)
Quarter: 2022Q1

REPORT INFORMATION
  Report Type: Spontaneous
  Country: EE (occurrence: EE)
  Receive Date: 20220111
  Receipt Date: 20220111
  Transmission Date: 20220424
  Serious: Yes (Other)
  Sender: FDA-Public Use
  Company Number: None

PATIENT
  Age: 43 Year
  Sex: Female
  Weight: 60 kg

DRUGS (1)
  1. CYCLOSPORINE [Suspect]
     Active Substance: CYCLOSPORINE
     Indication: Lichen planus
     Dosage: UNK
     Route: 048
     Dates: start: 2018

REACTIONS (1)
  - Chorioretinopathy [Not Recovered/Not Resolved]

NARRATIVE: CASE EVENT DATE: 20191113
